FAERS Safety Report 4702938-4 (Version None)
Quarter: 2005Q2

REPORT INFORMATION
  Report Type: 
  Country: None (occurrence: None)
  Receive Date: 20050629
  Receipt Date: 20050622
  Transmission Date: 20051028
  Serious: Yes (Hospitalization)
  Sender: FDA-Public Use
  Company Number: 200511606EU

PATIENT
  Age: 81 Year
  Sex: Female

DRUGS (2)
  1. FUROSEMIDE [Suspect]
     Dates: end: 20050222
  2. BENDROFLUAZIDE [Suspect]
     Route: 048
     Dates: end: 20050223

REACTIONS (2)
  - ASTHENIA [None]
  - MOBILITY DECREASED [None]
